FAERS Safety Report 10645004 (Version 1)
Quarter: 2014Q4

REPORT INFORMATION
  Report Type: Spontaneous
  Country: US (occurrence: None)
  Receive Date: 20141210
  Receipt Date: 20141210
  Transmission Date: 20150529
  Serious: No
  Sender: FDA-Public Use
  Company Number: None

PATIENT
  Age: 54 Year
  Sex: Female

DRUGS (1)
  1. ENBREL [Suspect]
     Active Substance: ETANERCEPT
     Indication: RHEUMATOID ARTHRITIS
     Dosage: 50MG, WEEKLY, SC
     Route: 058
     Dates: start: 20141006, end: 20141120

REACTIONS (3)
  - Injection site warmth [None]
  - Injection site reaction [None]
  - Injection site discolouration [None]

NARRATIVE: CASE EVENT DATE: 20141111
